FAERS Safety Report 8510033-1 (Version None)
Quarter: 2012Q2

REPORT INFORMATION
  Report Type: 
  Country: None (occurrence: None)
  Receive Date: 20120405
  Receipt Date: 20080902
  Transmission Date: 20120825
  Serious: Yes (Hospitalization)
  Sender: FDA-Public Use
  Company Number: PHEH2008US07816

PATIENT
  Sex: Female

DRUGS (1)
  1. RECLAST [Suspect]
     Dosage: INFUSION
     Dates: start: 20080815

REACTIONS (6)
  - ARTHRALGIA [None]
  - CHILLS [None]
  - FATIGUE [None]
  - PYREXIA [None]
  - HYPOKINESIA [None]
  - BONE PAIN [None]
